FAERS Safety Report 24351777 (Version 1)
Quarter: 2024Q3

REPORT INFORMATION
  Report Type: Report from Study
  Country: PE (occurrence: PE)
  Receive Date: 20240923
  Receipt Date: 20240923
  Transmission Date: 20241017
  Serious: No
  Sender: ROCHE
  Company Number: PE-ROCHE-3567903

PATIENT

DRUGS (8)
  1. HERCEPTIN [Suspect]
     Active Substance: TRASTUZUMAB
     Indication: Breast cancer
     Dosage: DILUTED IN SODIUM CHLORIDE 0.9% 250 ML, FIRST INFUSION IN 90 MINUTES, FROM THE SECOND ONE ON, IN 30
     Route: 042
  2. PERJETA [Suspect]
     Active Substance: PERTUZUMAB
     Indication: Breast cancer
     Dosage: DILUTED IN SODIUM CHLORIDE 0.9% 250 ML, FIRST INFUSION IN 90 MINUTES, FROM THE SECOND ONE ON, IN 30
     Route: 042
  3. SODIUM CHLORIDE [Concomitant]
     Active Substance: SODIUM CHLORIDE
     Dosage: DAY 1
     Route: 042
  4. RANITIDINE [Concomitant]
     Active Substance: RANITIDINE
     Dosage: SODIUM CHLORIDE 0.9% 100 ML, DAY 1, IN 10 MINUTE
     Route: 042
  5. CHLORPHENIRAMINE MALEATE [Concomitant]
     Active Substance: CHLORPHENIRAMINE MALEATE
     Dosage: SODIUM CHLORIDE 0.9% 100 ML, DAY 1, IN 10 MINUTE
     Route: 042
  6. ACETAMINOPHEN [Concomitant]
     Active Substance: ACETAMINOPHEN
     Dosage: DAY 1
     Route: 048
  7. DEXAMETHASONE [Concomitant]
     Active Substance: DEXAMETHASONE
     Dosage: DILUTED IN SODIUM CHLORIDE 0.9% 100 ML, DAY 1, IN 15 MINUTES
     Route: 042
  8. ONDANSETRON [Concomitant]
     Active Substance: ONDANSETRON
     Dosage: DILUTED IN SODIUM CHLORIDE 0.9% 100 ML, DAY 1, IN 10 MINUTES
     Route: 042

REACTIONS (3)
  - Intercepted product prescribing error [Unknown]
  - No adverse event [Unknown]
  - Product prescribing error [Unknown]
